FAERS Safety Report 9144868 (Version 3)
Quarter: 2013Q2

REPORT INFORMATION
  Report Type: Spontaneous
  Country: US (occurrence: US)
  Receive Date: 20130307
  Receipt Date: 20130507
  Transmission Date: 20140414
  Serious: No
  Sender: FDA-Public Use
  Company Number: US-009507513-1303USA001981

PATIENT
  Age: 36 Year
  Sex: Female
  Weight: 127 kg

DRUGS (4)
  1. PREGNYL [Suspect]
     Indication: IN VITRO FERTILISATION
     Dosage: UNK
     Route: 058
     Dates: start: 20130227
  2. LUPRON [Concomitant]
  3. DEXAMETHASONE [Concomitant]
  4. FOLLISTIM [Concomitant]

REACTIONS (2)
  - Drug ineffective [Unknown]
  - Product quality issue [Unknown]
